FAERS Safety Report 25946802 (Version 1)
Quarter: 2025Q4

REPORT INFORMATION
  Report Type: Spontaneous
  Country: EU (occurrence: None)
  Receive Date: 20251022
  Receipt Date: 20251022
  Transmission Date: 20260117
  Serious: Yes (Other)
  Sender: ORGANON
  Company Number: None

PATIENT
  Age: 32 Year
  Sex: Female
  Weight: 48 kg

DRUGS (1)
  1. REMERON [Suspect]
     Active Substance: MIRTAZAPINE
     Indication: Stress
     Dosage: 15 MILLIGRAM
     Dates: start: 20250909, end: 20250910

REACTIONS (5)
  - Aphasia [Recovering/Resolving]
  - Movement disorder [Recovering/Resolving]
  - Asthenopia [Recovering/Resolving]
  - Feeding disorder [Recovering/Resolving]
  - Product use in unapproved indication [Unknown]

NARRATIVE: CASE EVENT DATE: 20250909
